FAERS Safety Report 9404673 (Version 12)
Quarter: 2014Q1

REPORT INFORMATION
  Report Type: Spontaneous
  Country: IT (occurrence: IT)
  Receive Date: 20130717
  Receipt Date: 20140318
  Transmission Date: 20141002
  Serious: Yes (Death, Hospitalization, Other)
  Sender: FDA-Public Use
  Company Number: PHHY2013IT073995

PATIENT
  Age: 46 Year
  Sex: Female

DRUGS (6)
  1. GILENYA [Suspect]
     Indication: MULTIPLE SCLEROSIS
     Dosage: 0.5 MG, QD
     Route: 048
     Dates: start: 20121101, end: 20130620
  2. MYDOCALM ^STROSCHEIN^ [Concomitant]
  3. TEOTARD [Concomitant]
     Dosage: 200 MG, UNK
  4. BILOBIL [Concomitant]
     Dosage: 40 MG, UNK
  5. BETASERC [Concomitant]
     Dosage: 24 MG, UNK
  6. OMEZ//OMEPRAZOLE [Concomitant]
     Dosage: 20 MG, UNK

REACTIONS (45)
  - Multiple sclerosis [Fatal]
  - Optic neuritis [Fatal]
  - Coma [Fatal]
  - Cardio-respiratory arrest [Fatal]
  - Bronchopneumonia [Fatal]
  - Hyperreflexia [Unknown]
  - Progressive multifocal leukoencephalopathy [Not Recovered/Not Resolved]
  - Quadriplegia [Not Recovered/Not Resolved]
  - Altered state of consciousness [Not Recovered/Not Resolved]
  - JC virus test positive [Unknown]
  - Dysphagia [Unknown]
  - Dysarthria [Unknown]
  - Visual acuity reduced [Unknown]
  - Dysphonia [Unknown]
  - Muscle spasticity [Unknown]
  - Cerebellar syndrome [Unknown]
  - Paralysis [Unknown]
  - Clonus [Unknown]
  - Central nervous system lesion [Unknown]
  - Hemiparesis [Unknown]
  - Gait disturbance [Unknown]
  - Blindness [Unknown]
  - Cognitive disorder [Unknown]
  - Memory impairment [Unknown]
  - Confusional state [Unknown]
  - Vertigo [Unknown]
  - Vomiting [Unknown]
  - Balance disorder [Unknown]
  - Muscular weakness [Unknown]
  - Musculoskeletal stiffness [Unknown]
  - Hypertonia [Unknown]
  - Paraplegia [Unknown]
  - Foot deformity [Unknown]
  - Dizziness [Unknown]
  - Monoparesis [Unknown]
  - Spastic paraplegia [Unknown]
  - Extensor plantar response [Unknown]
  - Nystagmus [Unknown]
  - Aphasia [Unknown]
  - Eye movement disorder [Unknown]
  - Oculomotor study [Unknown]
  - Immune reconstitution inflammatory syndrome [Unknown]
  - Hyponatraemia [Unknown]
  - Hyperkalaemia [Unknown]
  - Tachycardia [Unknown]
